FAERS Safety Report 13441889 (Version 1)
Quarter: 2017Q2

REPORT INFORMATION
  Report Type: Report from Study
  Country: IL (occurrence: IL)
  Receive Date: 20170413
  Receipt Date: 20170413
  Transmission Date: 20170830
  Serious: Yes (Other)
  Sender: FDA-Public Use
  Company Number: IL-BIOGEN-2017BI00387514

PATIENT
  Sex: Female
  Weight: 90 kg

DRUGS (1)
  1. TECFIDERA [Suspect]
     Active Substance: DIMETHYL FUMARATE
     Indication: MULTIPLE SCLEROSIS
     Dosage: STARTING DOSE
     Route: 065

REACTIONS (4)
  - Pruritus generalised [Recovered/Resolved]
  - Feeling hot [Recovered/Resolved]
  - Generalised erythema [Recovered/Resolved]
  - Choking sensation [Recovered/Resolved]
